FAERS Safety Report 4399716-5 (Version None)
Quarter: 2004Q2

REPORT INFORMATION
  Report Type: 
  Country: None (occurrence: None)
  Receive Date: 20040608
  Receipt Date: 20040422
  Transmission Date: 20050107
  Serious: No
  Sender: FDA-Public Use
  Company Number: FROV000190

PATIENT
  Age: 42 Year
  Sex: Female

DRUGS (7)
  1. FROVA [Suspect]
     Indication: MIGRAINE
     Dosage: 5 MG; ORAL
     Route: 048
     Dates: start: 20040421
  2. FIORICET (CAFFEINE) [Concomitant]
  3. NEURONTIN [Concomitant]
  4. TOPAMAX [Concomitant]
  5. LASIX [Concomitant]
  6. SEROQUEL [Concomitant]
  7. ZOLOFT [Concomitant]

REACTIONS (2)
  - ARTHRALGIA [None]
  - MIGRAINE [None]
